FAERS Safety Report 24184809 (Version 1)
Quarter: 2024Q3

REPORT INFORMATION
  Report Type: Spontaneous
  Country: US (occurrence: US)
  Receive Date: 20240807
  Receipt Date: 20240807
  Transmission Date: 20241017
  Serious: No
  Sender: JOHNSON AND JOHNSON
  Company Number: US-JNJFOC-20240768233

PATIENT
  Sex: Female

DRUGS (4)
  1. IMODIUM [Suspect]
     Active Substance: LOPERAMIDE HYDROCHLORIDE
     Indication: Diarrhoea
     Route: 065
  2. LOPERAMIDE HYDROCHLORIDE [Concomitant]
     Active Substance: LOPERAMIDE HYDROCHLORIDE
     Indication: Diarrhoea
     Route: 065
  3. TUKYSA [Concomitant]
     Active Substance: TUCATINIB
     Indication: Product used for unknown indication
     Dosage: 150MG TABLETS 120CT, TAKE 2 TABKETS TWICE DAILY
     Route: 048
     Dates: start: 20221201
  4. KAOPECTATE [Concomitant]
     Active Substance: BISMUTH SUBSALICYLATE
     Indication: Diarrhoea
     Route: 065

REACTIONS (1)
  - Contraindicated product administered [Unknown]
